FAERS Safety Report 14184050 (Version 2)
Quarter: 2017Q4

REPORT INFORMATION
  Report Type: Spontaneous
  Country: US (occurrence: US)
  Receive Date: 20171113
  Receipt Date: 20171117
  Transmission Date: 20180321
  Serious: Yes (Other)
  Sender: FDA-Public Use
  Company Number: US-PFIZER INC-2017481630

PATIENT
  Age: 53 Year
  Sex: Male

DRUGS (2)
  1. DOXYCYCLINE HYCLATE. [Suspect]
     Active Substance: DOXYCYCLINE HYCLATE
     Dosage: 40 MG, DAILY
     Route: 048
  2. DOXYCYCLINE HYCLATE. [Suspect]
     Active Substance: DOXYCYCLINE HYCLATE
     Indication: ROSACEA
     Dosage: 100 MG, UNK
     Route: 048

REACTIONS (6)
  - Skin ulcer [Unknown]
  - Myalgia [Recovered/Resolved]
  - Malaise [Recovered/Resolved]
  - Mouth ulceration [Unknown]
  - Blister [Unknown]
  - Skin lesion [Recovered/Resolved]
